FAERS Safety Report 8180932-1 (Version None)
Quarter: 2012Q1

REPORT INFORMATION
  Report Type: 
  Country: None (occurrence: None)
  Receive Date: 20120229
  Receipt Date: 20120222
  Transmission Date: 20120608
  Serious: Yes (Other)
  Sender: FDA-Public Use
  Company Number: 2012047656

PATIENT

DRUGS (1)
  1. FRAGMIN [Suspect]

REACTIONS (1)
  - NEPHROPATHY TOXIC [None]
